FAERS Safety Report 22933752 (Version 3)
Quarter: 2024Q1

REPORT INFORMATION
  Report Type: Spontaneous
  Country: FR (occurrence: FR)
  Receive Date: 20230912
  Receipt Date: 20240212
  Transmission Date: 20240410
  Serious: Yes (Other)
  Sender: FDA-Public Use
  Company Number: None

PATIENT
  Age: 20 Year
  Sex: Male
  Weight: 92 kg

DRUGS (15)
  1. CISATRACURIUM [Suspect]
     Active Substance: CISATRACURIUM
     Indication: General anaesthesia
     Dosage: 8 MILLIGRAM, 1 TOTAL
     Route: 042
     Dates: start: 20230628, end: 20230628
  2. DEXAMETHASONE [Suspect]
     Active Substance: DEXAMETHASONE
     Indication: General anaesthesia
     Dosage: 8 MILLIGRAM, 1 TOTAL
     Route: 042
     Dates: start: 20230628, end: 20230628
  3. ROPIVACAINE [Suspect]
     Active Substance: ROPIVACAINE
     Indication: Infiltration anaesthesia
     Dosage: UNK
     Route: 053
     Dates: start: 20230628, end: 20230628
  4. SUFENTANIL [Suspect]
     Active Substance: SUFENTANIL
     Indication: General anaesthesia
     Dosage: 25 MICROGRAM, 1 TOTAL
     Route: 042
     Dates: start: 20230628, end: 20230628
  5. SUFENTANIL [Suspect]
     Active Substance: SUFENTANIL
     Indication: Pain prophylaxis
  6. TRANEXAMIC ACID [Suspect]
     Active Substance: TRANEXAMIC ACID
     Indication: Haemorrhage prophylaxis
     Dosage: 1 GRAM, 1 TOTAL
     Route: 042
     Dates: start: 20230628, end: 20230628
  7. NEFOPAM [Suspect]
     Active Substance: NEFOPAM
     Indication: Pain prophylaxis
     Dosage: 20 MILLIGRAM, 1 TOTAL
     Route: 042
     Dates: start: 20230628, end: 20230628
  8. ACETAMINOPHEN [Suspect]
     Active Substance: ACETAMINOPHEN
     Indication: Pain prophylaxis
     Dosage: 1 GRAM, 1 TOTAL
     Route: 042
     Dates: start: 20230628, end: 20230629
  9. KETOPROFEN [Suspect]
     Active Substance: KETOPROFEN
     Indication: Pain prophylaxis
     Dosage: 100 MILLIGRAM, 1 TOTAL
     Route: 042
     Dates: start: 20230628, end: 20230628
  10. THIOPENTAL SODIUM [Suspect]
     Active Substance: THIOPENTAL SODIUM
     Indication: General anaesthesia
     Dosage: 450 MILLIGRAM, 1 TOTAL
     Route: 042
     Dates: start: 20230628, end: 20230628
  11. CLINDAMYCIN [Suspect]
     Active Substance: CLINDAMYCIN
     Indication: Antibiotic prophylaxis
     Dosage: 900 MILLIGRAM, 1 TOTAL
     Route: 042
     Dates: start: 20230628, end: 20230628
  12. SIMPONI [Concomitant]
     Active Substance: GOLIMUMAB
     Indication: Conjunctivitis allergic
     Dosage: UNK
     Route: 065
  13. SIMPONI [Concomitant]
     Active Substance: GOLIMUMAB
     Dosage: UNK
     Route: 065
     Dates: start: 202110
  14. DICLOFENAC [Concomitant]
     Active Substance: DICLOFENAC
     Dosage: UNK
     Route: 065
  15. CETIRIZINE [Concomitant]
     Active Substance: CETIRIZINE HYDROCHLORIDE
     Indication: Urticaria chronic
     Dosage: UNK
     Route: 065

REACTIONS (2)
  - Urticaria [Recovered/Resolved]
  - Tachycardia [Recovered/Resolved]

NARRATIVE: CASE EVENT DATE: 20230628
